FAERS Safety Report 17985836 (Version 2)
Quarter: 2020Q3

REPORT INFORMATION
  Report Type: Report from Study
  Country: GB (occurrence: GB)
  Receive Date: 20200706
  Receipt Date: 20200711
  Transmission Date: 20201103
  Serious: Yes (Other)
  Sender: FDA-Public Use
  Company Number: GB-SAMSUNG BIOEPIS-SB-2020-19521

PATIENT
  Sex: Female

DRUGS (2)
  1. BENEPALI [Suspect]
     Active Substance: ETANERCEPT
     Indication: RHEUMATOID ARTHRITIS
     Route: 058
     Dates: start: 20190729
  2. BENEPALI [Suspect]
     Active Substance: ETANERCEPT
     Route: 058

REACTIONS (3)
  - Lower respiratory tract infection [Recovering/Resolving]
  - Decreased appetite [Not Recovered/Not Resolved]
  - Product use issue [Unknown]
